FAERS Safety Report 8750066 (Version 4)
Quarter: 2013Q1

REPORT INFORMATION
  Report Type: Spontaneous
  Country: JP (occurrence: None)
  Receive Date: 20120809
  Receipt Date: 20130131
  Transmission Date: 20140127
  Serious: Yes (Hospitalization, Other)
  Sender: FDA-Public Use
  Company Number: DSJ-2012-13487

PATIENT
  Age: 78 Year
  Sex: Male
  Weight: 71 kg

DRUGS (1)
  1. OLMESARTAN MEDOXOMIL [Suspect]
     Indication: HYPERTENSION
     Dosage: (10 MG, 1 IN 1 D)
     Route: 048
     Dates: start: 20111119, end: 20120725

REACTIONS (4)
  - Interstitial lung disease [None]
  - Nasopharyngitis [None]
  - Bronchitis [None]
  - Pneumonia [None]
